FAERS Safety Report 14989304 (Version 1)
Quarter: 2018Q2

REPORT INFORMATION
  Report Type: Spontaneous
  Country: US (occurrence: US)
  Receive Date: 20180520
  Receipt Date: 20180520
  Transmission Date: 20180711
  Serious: Yes (Other)
  Sender: FDA-Public Use
  Company Number: None

PATIENT
  Sex: Female

DRUGS (4)
  1. VITAMIN D [Concomitant]
     Active Substance: CHOLECALCIFEROL
  2. VITAMIN B12 [Concomitant]
     Active Substance: CYANOCOBALAMIN
  3. ESCITALOPRAM [Suspect]
     Active Substance: ESCITALOPRAM OXALATE
     Indication: ANXIETY
     Dosage: ?          QUANTITY:5 ML;?
     Route: 048
     Dates: start: 20180518, end: 20180520
  4. IRON [Concomitant]
     Active Substance: IRON

REACTIONS (10)
  - Headache [None]
  - Product taste abnormal [None]
  - Product quality issue [None]
  - Pharyngeal oedema [None]
  - Pruritus [None]
  - Dyspnoea [None]
  - Neck pain [None]
  - Hypersensitivity [None]
  - Product substitution issue [None]
  - Throat irritation [None]

NARRATIVE: CASE EVENT DATE: 20180519
